FAERS Safety Report 16724436 (Version 1)
Quarter: 2019Q3

REPORT INFORMATION
  Report Type: Spontaneous
  Country: US (occurrence: US)
  Receive Date: 20190821
  Receipt Date: 20190821
  Transmission Date: 20191005
  Serious: Yes (Hospitalization)
  Sender: FDA-Public Use
  Company Number: US-AQUESTIVE THERAPEUTICS, INC.-2019AQU00012

PATIENT
  Sex: Female

DRUGS (1)
  1. SYMPAZAN [Suspect]
     Active Substance: CLOBAZAM

REACTIONS (1)
  - Loss of consciousness [Unknown]
